FAERS Safety Report 7313193-3 (Version None)
Quarter: 2011Q1

REPORT INFORMATION
  Report Type: 
  Country: None (occurrence: None)
  Receive Date: 20110225
  Receipt Date: 20110211
  Transmission Date: 20110831
  Serious: Yes (Hospitalization)
  Sender: FDA-Public Use
  Company Number: FR-JNJFOC-20110102746

PATIENT
  Age: 70 Year
  Sex: Female

DRUGS (2)
  1. ZALDIAR [Suspect]
     Indication: PAIN
     Route: 048
  2. ZAMUDOL [Suspect]
     Indication: PAIN
     Route: 048

REACTIONS (1)
  - OEDEMA [None]
